FAERS Safety Report 4989097-8 (Version None)
Quarter: 2006Q2

REPORT INFORMATION
  Report Type: 
  Country: None (occurrence: None)
  Receive Date: 20060425
  Receipt Date: 20050825
  Transmission Date: 20061013
  Serious: Yes (Other)
  Sender: FDA-Public Use
  Company Number: 2005109990

PATIENT
  Age: 73 Year
  Sex: Female
  Weight: 52.1637 kg

DRUGS (5)
  1. DETROL LA [Suspect]
     Indication: NOCTURIA
     Dosage: 2 MG (2 MG, 1IN 1 D), ORAL
     Route: 048
     Dates: start: 20050722
  2. CLONIDINE [Suspect]
     Indication: HYPERTENSION
  3. PREMARIN [Concomitant]
  4. VITAMIN E [Concomitant]
  5. CALCIUM (CALCIUM) [Concomitant]

REACTIONS (8)
  - ABDOMINAL PAIN UPPER [None]
  - CONDITION AGGRAVATED [None]
  - CONSTIPATION [None]
  - DIVERTICULITIS INTESTINAL HAEMORRHAGIC [None]
  - DRUG INEFFECTIVE [None]
  - DRY MOUTH [None]
  - GASTROINTESTINAL DISORDER [None]
  - MUSCLE SPASMS [None]
